FAERS Safety Report 12352814 (Version 2)
Quarter: 2016Q2

REPORT INFORMATION
  Report Type: Spontaneous
  Country: US (occurrence: US)
  Receive Date: 20160510
  Receipt Date: 20160511
  Transmission Date: 20160815
  Serious: Yes (Other)
  Sender: FDA-Public Use
  Company Number: US-BAYER-2016-088813

PATIENT
  Age: 75 Year
  Sex: Female
  Weight: 69.39 kg

DRUGS (7)
  1. CLARITIN REDITABS [Suspect]
     Active Substance: LORATADINE
     Indication: COUGH
  2. BAYER LOW DOSE [Suspect]
     Active Substance: ASPIRIN
     Indication: PROPHYLAXIS
     Dosage: 1 DF, QOD
     Route: 048
  3. CLARITIN REDITABS [Suspect]
     Active Substance: LORATADINE
     Indication: RHINORRHOEA
     Dosage: 1 DF, ONCE
     Route: 048
     Dates: start: 20160504, end: 20160504
  4. BAYER GENUINE ASPIRIN [Suspect]
     Active Substance: ASPIRIN
     Indication: MIGRAINE WITH AURA
     Dosage: 2 DF, PRN
     Route: 048
  5. BAYER LOW DOSE [Suspect]
     Active Substance: ASPIRIN
     Indication: ROUTINE HEALTH MAINTENANCE
     Dosage: 1 DF, QD
     Route: 048
  6. SYNTHROID [Concomitant]
     Active Substance: LEVOTHYROXINE SODIUM
  7. AZITHROMYCIN ANHYDROUS. [Concomitant]
     Active Substance: AZITHROMYCIN ANHYDROUS

REACTIONS (8)
  - Glossodynia [Not Recovered/Not Resolved]
  - Drug ineffective for unapproved indication [None]
  - Product use issue [None]
  - Intentional product misuse [None]
  - Chemical burn of gastrointestinal tract [Recovered/Resolved]
  - Glossodynia [Recovered/Resolved]
  - Therapeutic response unexpected [None]
  - Neck pain [None]

NARRATIVE: CASE EVENT DATE: 20160504
